FAERS Safety Report 6195993-9 (Version None)
Quarter: 2009Q2

REPORT INFORMATION
  Report Type: 
  Country: None (occurrence: None)
  Receive Date: 20090520
  Receipt Date: 20030330
  Transmission Date: 20091009
  Serious: Yes (Death, Hospitalization)
  Sender: FDA-Public Use
  Company Number: NL-ROCHE-334349

PATIENT
  Sex: Male

DRUGS (8)
  1. CAPECITABINE [Suspect]
     Dosage: INTERMITTENT THERAPY OF TWO WEEKS TREATMENT ONE WEEK REST.
     Route: 048
     Dates: start: 20030311
  2. CAPECITABINE [Suspect]
     Dosage: REDUCED DOSE
     Route: 048
  3. CAPECITABINE [Suspect]
     Route: 048
     Dates: end: 20030323
  4. IRINOTECAN HCL [Suspect]
     Route: 042
     Dates: start: 20030311
  5. IRINOTECAN HCL [Suspect]
     Route: 042
  6. AMLODIPINE [Concomitant]
     Dates: start: 19940101
  7. LISINOPRIL [Concomitant]
     Dates: start: 19940101
  8. ACETOSAL [Concomitant]
     Dates: start: 19940101

REACTIONS (5)
  - CONSTIPATION [None]
  - DIARRHOEA [None]
  - NEUTROPENIA [None]
  - PULMONARY EMBOLISM [None]
  - PYREXIA [None]
